FAERS Safety Report 5346114-3 (Version None)
Quarter: 2007Q2

REPORT INFORMATION
  Report Type: 
  Country: None (occurrence: None)
  Receive Date: 20070427
  Receipt Date: 20070219
  Transmission Date: 20071010
  Serious: No
  Sender: FDA-Public Use
  Company Number: 2007-US-000179

PATIENT
  Sex: Female

DRUGS (1)
  1. INCRELEX [Suspect]
     Dosage: 0.40 MG, BID, SUBCUTANEOUS
     Route: 058
     Dates: start: 20070216, end: 20070217

REACTIONS (2)
  - INJECTION SITE PRURITUS [None]
  - INJECTION SITE SWELLING [None]
